FAERS Safety Report 4911720-4 (Version None)
Quarter: 2006Q1

REPORT INFORMATION
  Report Type: 
  Country: None (occurrence: None)
  Receive Date: 20060213
  Receipt Date: 20060206
  Transmission Date: 20060701
  Serious: Yes (Hospitalization)
  Sender: FDA-Public Use
  Company Number: S06-USA-00344-01

PATIENT
  Age: 77 Year
  Sex: Male

DRUGS (4)
  1. LEXAPRO [Suspect]
     Indication: DEPRESSION
     Dosage: 10 MG  PO
     Route: 048
     Dates: start: 20060105, end: 20060101
  2. ATENOLOL [Concomitant]
  3. ZOCOR [Concomitant]
  4. LISINOPRIL [Concomitant]

REACTIONS (1)
  - IDIOPATHIC THROMBOCYTOPENIC PURPURA [None]
